FAERS Safety Report 8269235-4 (Version None)
Quarter: 2012Q2

REPORT INFORMATION
  Report Type: 
  Country: None (occurrence: None)
  Receive Date: 20120409
  Receipt Date: 20120329
  Transmission Date: 20120825
  Serious: Yes (Other)
  Sender: FDA-Public Use
  Company Number: IT-TEVA-331536ISR

PATIENT
  Sex: Male

DRUGS (1)
  1. OXALIPLATIN [Suspect]

REACTIONS (2)
  - TINNITUS [None]
  - HYPOACUSIS [None]
